FAERS Safety Report 9504535 (Version 3)
Quarter: 2013Q4

REPORT INFORMATION
  Report Type: Report from Study
  Country: DE (occurrence: DE)
  Receive Date: 20130906
  Receipt Date: 20131004
  Transmission Date: 20140711
  Serious: Yes (Hospitalization)
  Sender: FDA-Public Use
  Company Number: DE-TEVA-422740GER

PATIENT
  Sex: Male

DRUGS (12)
  1. DOXORUBICIN [Suspect]
     Indication: B-CELL LYMPHOMA
     Route: 042
     Dates: start: 20130507, end: 20130724
  2. PREDNISOLONE [Suspect]
     Indication: B-CELL LYMPHOMA
     Dosage: DAILY FOR 5 DAYS
     Dates: start: 20130507, end: 20130729
  3. LIPOSOMAL VINCRISTINE [Suspect]
     Indication: B-CELL LYMPHOMA
     Route: 042
     Dates: start: 20130507, end: 20130724
  4. RITUXIMAB [Suspect]
     Indication: B-CELL LYMPHOMA
     Route: 042
     Dates: start: 20130506
  5. PEGFILGRASTIM [Suspect]
     Dosage: DAY 4 OF EACH CYCLE
     Route: 058
     Dates: start: 20130510, end: 20130727
  6. CYCLOPHOSPHAMIDE [Suspect]
     Indication: B-CELL LYMPHOMA
     Route: 042
     Dates: start: 20130507, end: 20130724
  7. CITALOPRAM [Concomitant]
     Indication: DEPRESSION
     Dosage: 200MG ONCE
     Route: 048
  8. FOLIC ACID [Concomitant]
     Indication: PROPHYLAXIS
     Route: 048
     Dates: start: 20130506
  9. ACYCLOVIR [Concomitant]
     Indication: PROPHYLAXIS
     Dosage: 1600 MILLIGRAM DAILY;
     Route: 048
     Dates: start: 20130506
  10. ASPIRIN [Concomitant]
     Indication: PROPHYLAXIS
     Dosage: 100MG ONCE
     Route: 048
  11. ALLOPURINOL [Concomitant]
     Dosage: 100 MILLIGRAM DAILY;
     Route: 048
     Dates: start: 201305
  12. SULFAMETHOXAZOLE/TRIMETHOPRIM [Concomitant]
     Route: 048
     Dates: start: 20130506

REACTIONS (2)
  - Pyrexia [Recovered/Resolved]
  - Pneumonia [Recovered/Resolved]
